FAERS Safety Report 5268625-1 (Version None)
Quarter: 2007Q1

REPORT INFORMATION
  Report Type: 
  Country: None (occurrence: None)
  Receive Date: 20070313
  Receipt Date: 20070302
  Transmission Date: 20070707
  Serious: Yes (Hospitalization)
  Sender: FDA-Public Use
  Company Number: E2090-00191-SPO-JP

PATIENT
  Age: 65 Year
  Sex: Male

DRUGS (4)
  1. EXCEGRAN (ZONISAMIDE) [Suspect]
     Indication: POST-TRAUMATIC EPILEPSY
     Dosage: 800 MG, ORAL
     Route: 048
  2. TSUMURA DAIOKANZOTO (TSUMURA DAISAIKOTOU) [Concomitant]
  3. PURSENNID (SENNA LEAF) [Concomitant]
  4. BLOSTARM M (FAMOTIDINE) [Concomitant]

REACTIONS (1)
  - CALCULUS URETERIC [None]
